FAERS Safety Report 12240689 (Version 31)
Quarter: 2024Q2

REPORT INFORMATION
  Report Type: Other
  Country: CA (occurrence: None)
  Receive Date: 20160406
  Receipt Date: 20240521
  Transmission Date: 20240715
  Serious: Yes (Hospitalization, Other)
  Sender: FDA-Public Use
  Company Number: CA-ROCHE-1188566

PATIENT
  Age: 53 Year
  Sex: Female
  Weight: 100.2 kg

DRUGS (24)
  1. RITUXAN [Suspect]
     Active Substance: RITUXIMAB
     Indication: Rheumatoid arthritis
     Dosage: LAST DOSE: 07/APR/2015, 17/APR/2015, 05/JUN/2015?PREVIOUS RITUXAN INFUSION: 03/APR/2018?LAST INFUSI
     Route: 041
     Dates: start: 20120627
  2. RITUXAN [Suspect]
     Active Substance: RITUXIMAB
     Route: 042
     Dates: start: 20180320, end: 20180320
  3. ARAVA [Concomitant]
     Active Substance: LEFLUNOMIDE
  4. FOSAVANCE [Concomitant]
     Active Substance: ALENDRONATE SODIUM\CHOLECALCIFEROL
  5. OMEGA 3 [Concomitant]
     Active Substance: CAPSAICIN
  6. DIPHENHYDRAMINE HYDROCHLORIDE [Concomitant]
     Active Substance: DIPHENHYDRAMINE HYDROCHLORIDE
     Indication: Premedication
     Route: 048
     Dates: start: 20120627, end: 20140903
  7. DIPHENHYDRAMINE HYDROCHLORIDE [Concomitant]
     Active Substance: DIPHENHYDRAMINE HYDROCHLORIDE
     Route: 048
     Dates: start: 20140917, end: 20140917
  8. DIPHENHYDRAMINE HYDROCHLORIDE [Concomitant]
     Active Substance: DIPHENHYDRAMINE HYDROCHLORIDE
     Route: 048
     Dates: start: 20150417, end: 20150417
  9. DIPHENHYDRAMINE HYDROCHLORIDE [Concomitant]
     Active Substance: DIPHENHYDRAMINE HYDROCHLORIDE
     Route: 048
     Dates: start: 20150605, end: 20150605
  10. DIPHENHYDRAMINE HYDROCHLORIDE [Concomitant]
     Active Substance: DIPHENHYDRAMINE HYDROCHLORIDE
     Route: 048
     Dates: start: 20160420
  11. ACETAMINOPHEN [Concomitant]
     Active Substance: ACETAMINOPHEN
     Indication: Premedication
     Route: 048
     Dates: start: 20120627, end: 20140914
  12. ACETAMINOPHEN [Concomitant]
     Active Substance: ACETAMINOPHEN
     Route: 048
     Dates: start: 20150417
  13. PREDNISONE [Concomitant]
     Active Substance: PREDNISONE
  14. BENADRYL [Concomitant]
     Active Substance: DIPHENHYDRAMINE HYDROCHLORIDE
     Indication: Throat irritation
     Route: 048
     Dates: start: 20140903
  15. BENADRYL [Concomitant]
     Active Substance: DIPHENHYDRAMINE HYDROCHLORIDE
     Dosage: DOSE: 50
     Route: 042
     Dates: start: 20220818
  16. METHYLPREDNISOLONE [Concomitant]
     Active Substance: METHYLPREDNISOLONE
     Indication: Premedication
     Route: 042
     Dates: start: 20120627
  17. NASONEX [Concomitant]
     Active Substance: MOMETASONE FUROATE
  18. ANASTROZOLE [Concomitant]
     Active Substance: ANASTROZOLE
  19. ATORVASTATIN [Concomitant]
     Active Substance: ATORVASTATIN
     Indication: Blood cholesterol increased
  20. CELEXA [Concomitant]
     Active Substance: CITALOPRAM HYDROBROMIDE
  21. RANITIDINE [Concomitant]
     Active Substance: RANITIDINE
  22. ACETAMINOPHEN [Concomitant]
     Active Substance: ACETAMINOPHEN
  23. CIPRODEX (CANADA) [Concomitant]
     Indication: Ear infection
  24. SOLU-MEDROL [Concomitant]
     Active Substance: METHYLPREDNISOLONE SODIUM SUCCINATE
     Indication: Premedication
     Dosage: DOSE: 150
     Dates: start: 20220818

REACTIONS (27)
  - Blood cholesterol increased [Unknown]
  - Mastitis [Recovered/Resolved]
  - Cholelithiasis [Unknown]
  - Mass [Not Recovered/Not Resolved]
  - Infusion related reaction [Recovered/Resolved]
  - Oropharyngeal pain [Unknown]
  - Cough [Recovered/Resolved]
  - Pyrexia [Unknown]
  - Dyspnoea [Not Recovered/Not Resolved]
  - Liver function test abnormal [Unknown]
  - Sinusitis [Recovering/Resolving]
  - Vulvovaginal mycotic infection [Not Recovered/Not Resolved]
  - Ear infection [Not Recovered/Not Resolved]
  - Oxygen saturation decreased [Unknown]
  - Arthralgia [Not Recovered/Not Resolved]
  - Nasopharyngitis [Not Recovered/Not Resolved]
  - Lung disorder [Not Recovered/Not Resolved]
  - Fall [Unknown]
  - Head injury [Unknown]
  - Headache [Not Recovered/Not Resolved]
  - Infusion related reaction [Recovered/Resolved]
  - Blood urine present [Unknown]
  - Bronchitis [Not Recovered/Not Resolved]
  - Heart rate increased [Unknown]
  - Blood pressure diastolic abnormal [Unknown]
  - Blood pressure diastolic decreased [Unknown]
  - Blood pressure fluctuation [Unknown]

NARRATIVE: CASE EVENT DATE: 20120801
